FAERS Safety Report 4725489-X (Version None)
Quarter: 2005Q3

REPORT INFORMATION
  Report Type: 
  Country: None (occurrence: None)
  Receive Date: 20050727
  Receipt Date: 20050725
  Transmission Date: 20060218
  Serious: Yes (Death, Hospitalization)
  Sender: FDA-Public Use
  Company Number: PHRM2005FR02140

PATIENT
  Age: 84 Year
  Sex: Female

DRUGS (12)
  1. TAREG [Suspect]
     Dosage: 80 MG, BID
     Route: 048
     Dates: end: 20050406
  2. TAREG [Suspect]
     Dosage: 80 MG, BID
     Route: 048
     Dates: start: 20050421, end: 20050426
  3. ALDACTONE [Suspect]
     Dosage: 25 MG, QOD
     Route: 048
     Dates: start: 20050421, end: 20050425
  4. LASIX [Suspect]
     Dosage: 20 MG, QD
     Route: 048
     Dates: start: 20050415
  5. KARDEGIC [Concomitant]
     Dosage: 75 MG, QD
     Route: 048
     Dates: start: 20050406
  6. ELISOR [Concomitant]
     Dosage: 40 MG, QD
     Route: 048
     Dates: start: 20050406
  7. CARDENSIEL [Concomitant]
     Dosage: 2.5 MG, QD
     Route: 048
     Dates: start: 20050406
  8. LYSANXIA [Concomitant]
     Dosage: 1 DF, QD
     Route: 048
     Dates: start: 20050406
  9. RAMIPRIL [Concomitant]
     Dosage: 2.5 MG, BID
     Route: 048
     Dates: start: 20050406, end: 20050421
  10. TANAKAN [Concomitant]
     Route: 048
  11. ENDOTELON [Concomitant]
     Route: 048
  12. PLAVIX [Concomitant]
     Dosage: 75 MG, QD
     Route: 048
     Dates: start: 20050406

REACTIONS (9)
  - BLOOD CREATININE INCREASED [None]
  - C-REACTIVE PROTEIN INCREASED [None]
  - DRUG INTERACTION [None]
  - EOSINOPHILIA [None]
  - MYOCARDIAL INFARCTION [None]
  - PRURITUS [None]
  - PSYCHOMOTOR SKILLS IMPAIRED [None]
  - RASH GENERALISED [None]
  - RENAL FAILURE ACUTE [None]
